FAERS Safety Report 6817362-8 (Version None)
Quarter: 2010Q3

REPORT INFORMATION
  Report Type: 
  Country: None (occurrence: None)
  Receive Date: 20100706
  Receipt Date: 20100625
  Transmission Date: 20110219
  Serious: Yes (Hospitalization, Other)
  Sender: FDA-Public Use
  Company Number: CA-WYE-G05363710

PATIENT
  Age: 59 Year
  Sex: Female
  Weight: 80.9 kg

DRUGS (15)
  1. TACROLIMUS [Suspect]
     Indication: PROPHYLAXIS AGAINST TRANSPLANT REJECTION
     Route: 048
     Dates: start: 20070614
  2. PREDNISONE TAB [Suspect]
     Indication: PROPHYLAXIS AGAINST TRANSPLANT REJECTION
     Route: 048
     Dates: start: 20070919
  3. ATENOLOL [Concomitant]
     Indication: HYPERTENSION
     Route: 048
     Dates: start: 20071123
  4. VALSARTAN [Concomitant]
     Indication: HYPERTENSION
     Dosage: 6.25 MG EVERY
     Route: 048
     Dates: start: 20070711
  5. DILTIAZEM [Concomitant]
     Indication: HYPERTENSION
     Dosage: 300 MG EVERY
     Route: 048
     Dates: start: 20010101
  6. METFORMIN HCL [Concomitant]
     Indication: DIABETES MELLITUS
     Dosage: 1700 MG EVERY
     Route: 048
     Dates: start: 20070701
  7. ACETYLSALICYLIC ACID [Concomitant]
     Indication: PROPHYLAXIS
     Route: 048
     Dates: start: 20010101
  8. PRAVASTATIN SODIUM [Concomitant]
     Indication: HYPERLIPIDAEMIA
     Dosage: 80 MG EVERY
     Route: 048
     Dates: start: 20070101
  9. CALCIUM CARBONATE [Concomitant]
     Indication: PROPHYLAXIS
     Dosage: 500 MG EVERY
     Route: 048
     Dates: start: 20070701
  10. EZETIMIBE [Concomitant]
     Indication: HYPERLIPIDAEMIA
     Dosage: 10 MG EVERY
     Route: 048
     Dates: start: 20070918
  11. ALFACALCIDOL [Concomitant]
     Indication: PROPHYLAXIS
     Dosage: 0.25 MCG
     Route: 048
     Dates: start: 20070701
  12. ALENDRONATE SODIUM [Concomitant]
     Indication: PROPHYLAXIS
     Route: 048
     Dates: start: 20070701
  13. VALPROIC ACID [Concomitant]
     Indication: BIPOLAR DISORDER
     Dosage: 750 MG EVERY
     Route: 048
     Dates: start: 20071201
  14. CLONAZEPAM [Concomitant]
     Indication: ANXIETY
     Dosage: 0.25 MG PRN
     Route: 048
     Dates: start: 20071201
  15. CELLCEPT [Suspect]
     Indication: PROPHYLAXIS AGAINST TRANSPLANT REJECTION
     Route: 048
     Dates: start: 20071011

REACTIONS (3)
  - INTESTINAL ADENOCARCINOMA [None]
  - PNEUMONIA [None]
  - WOUND INFECTION [None]
